FAERS Safety Report 11588406 (Version 1)
Quarter: 2015Q4

REPORT INFORMATION
  Report Type: Spontaneous
  Country: US (occurrence: None)
  Receive Date: 20151001
  Receipt Date: 20151001
  Transmission Date: 20160304
  Serious: Yes (Life-Threatening, Hospitalization)
  Sender: FDA-Public Use
  Company Number: None

PATIENT
  Age: 8 Year
  Sex: Male
  Weight: 31 kg

DRUGS (3)
  1. PREDNISONE. [Concomitant]
     Active Substance: PREDNISONE
  2. RITUXIMAB [Concomitant]
     Active Substance: RITUXIMAB
  3. GRIS-PEG [Suspect]
     Active Substance: GRISEOFULVIN
     Indication: TINEA CAPITIS
     Route: 048
     Dates: start: 20150605, end: 20150724

REACTIONS (1)
  - Agranulocytosis [None]

NARRATIVE: CASE EVENT DATE: 20150724
